FAERS Safety Report 7180253-X (Version None)
Quarter: 2010Q4

REPORT INFORMATION
  Report Type: 
  Country: None (occurrence: None)
  Receive Date: 20101221
  Receipt Date: 20101214
  Transmission Date: 20110411
  Serious: Yes (Other)
  Sender: FDA-Public Use
  Company Number: CN-JNJFOC-20101205488

PATIENT
  Age: 18 Month
  Sex: Male

DRUGS (1)
  1. ANTUSS INFANTS DECONGESTANT + COUGH [Suspect]
     Indication: NASOPHARYNGITIS
     Route: 048

REACTIONS (2)
  - INCORRECT DOSE ADMINISTERED [None]
  - SOMNOLENCE [None]
